FAERS Safety Report 4435371-3 (Version None)
Quarter: 2004Q3

REPORT INFORMATION
  Report Type: 
  Country: None (occurrence: None)
  Receive Date: 20040826
  Receipt Date: 20040813
  Transmission Date: 20050211
  Serious: Yes (Hospitalization)
  Sender: FDA-Public Use
  Company Number: 2004228330JP

PATIENT
  Age: 68 Year
  Sex: Male
  Weight: 65 kg

DRUGS (3)
  1. DOXORUBICIN HYDROCHLORIDE [Suspect]
     Indication: LYMPHOMA
     Dosage: 70 MG, CYCLIC, IV
     Route: 042
     Dates: start: 20040204, end: 20040409
  2. RITUXIMAB (RITUXIMAB) [Suspect]
     Indication: LYMPHOMA
     Dosage: 640 MG, CYCLIC, IV
     Route: 042
     Dates: start: 20040224, end: 20040408
  3. PREDONINE-1 (PREDNISOLONE ACETATE) [Concomitant]

REACTIONS (3)
  - INTERSTITIAL LUNG DISEASE [None]
  - PHARYNGOLARYNGEAL PAIN [None]
  - STOMATITIS [None]
